FAERS Safety Report 9741176 (Version 1)
Quarter: 2013Q4

REPORT INFORMATION
  Report Type: Spontaneous
  Country: CA (occurrence: CA)
  Receive Date: 20131209
  Receipt Date: 20131209
  Transmission Date: 20140711
  Serious: Yes (Other)
  Sender: FDA-Public Use
  Company Number: CA-BAYER-2013-147408

PATIENT
  Age: 23 Year
  Sex: Female

DRUGS (2)
  1. ALEVE [Suspect]
     Indication: BACK PAIN
  2. ALEVE [Suspect]
     Indication: CHEST PAIN

REACTIONS (2)
  - Ulcer [None]
  - Vomiting [Recovered/Resolved]
